FAERS Safety Report 9614574 (Version 2)
Quarter: 2013Q4

REPORT INFORMATION
  Report Type: Report from Study
  Country: US (occurrence: US)
  Receive Date: 20131011
  Receipt Date: 20131024
  Transmission Date: 20140711
  Serious: Yes (Death)
  Sender: FDA-Public Use
  Company Number: PHEH2013US021092

PATIENT
  Sex: Male

DRUGS (14)
  1. SIGNIFOR [Suspect]
     Dosage: 0.3 UG, BID
  2. OXYCONTIN [Concomitant]
     Dosage: 10 MG, BID
     Route: 048
  3. AMLODIPINE [Concomitant]
     Dosage: 5 MG, QD
     Route: 048
  4. L-THYROXINE [Concomitant]
     Dosage: 0.5 UG, QD
  5. PROTONIX [Concomitant]
     Dosage: 40 MG, UNK
     Route: 048
  6. LISINOPRIL [Concomitant]
     Dosage: 10 MG, QD
  7. ANDROGEL [Concomitant]
     Dosage: 1.62 %, QD
  8. CALCIUM D [Concomitant]
     Dosage: 1200 IU, BID
  9. METOPROLOL TARTRATE [Concomitant]
     Dosage: 50 IU, BID
  10. WARFARIN [Concomitant]
     Dosage: 3 IU, QD
  11. DESMOPRESSIN [Concomitant]
     Dosage: 0.05 IU, QD
  12. ATORVASTATIN [Concomitant]
     Dosage: 10 IU, QD
  13. OXYCODONE/APAP [Concomitant]
     Dosage: 2 DF, PER DAY PRN
  14. VITAMIN D [Concomitant]
     Dosage: 5000 IU, QD

REACTIONS (3)
  - Fall [Fatal]
  - Cerebral haemorrhage [Fatal]
  - Thrombosis [Fatal]
